FAERS Safety Report 5876662-9 (Version None)
Quarter: 2008Q3

REPORT INFORMATION
  Report Type: 
  Country: None (occurrence: None)
  Receive Date: 20080908
  Receipt Date: 20080908
  Transmission Date: 20090109
  Serious: Yes (Life-Threatening, Hospitalization)
  Sender: FDA-Public Use
  Company Number: None

PATIENT
  Age: 47 Year
  Sex: Female
  Weight: 54.4316 kg

DRUGS (2)
  1. ENBREL [Suspect]
     Indication: BEHCET'S SYNDROME
     Dosage: 25MG SUB-Q INJECTIONS 3 X WEEKLY SQ
     Route: 058
     Dates: start: 20010101, end: 20070201
  2. PREDNISONE TAB [Suspect]
     Indication: BEHCET'S SYNDROME
     Dosage: 60 MG TAPERING DOSES TO ZERO APPROX 4X YR PO
     Route: 048
     Dates: start: 19880801, end: 20060701

REACTIONS (12)
  - AGGRESSION [None]
  - AMNESIA [None]
  - BRONCHOPULMONARY ASPERGILLOSIS [None]
  - DEHYDRATION [None]
  - DEPRESSED LEVEL OF CONSCIOUSNESS [None]
  - DRUG EFFECT DECREASED [None]
  - IMMUNOSUPPRESSION [None]
  - MENTAL STATUS CHANGES [None]
  - MULTI-ORGAN FAILURE [None]
  - OEDEMA [None]
  - SEPTIC SHOCK [None]
  - URINARY TRACT INFECTION [None]
